FAERS Safety Report 23943967 (Version 1)
Quarter: 2024Q2

REPORT INFORMATION
  Report Type: Spontaneous
  Country: US (occurrence: US)
  Receive Date: 20240606
  Receipt Date: 20240606
  Transmission Date: 20240715
  Serious: No
  Sender: FDA-Public Use
  Company Number: US-SA-SAC20240605000046

PATIENT
  Sex: Male

DRUGS (1)
  1. DUPIXENT [Suspect]
     Active Substance: DUPILUMAB
     Indication: Drug eruption
     Dosage: 200 MG, QOW
     Route: 058

REACTIONS (2)
  - Sunburn [Unknown]
  - Product use in unapproved indication [Unknown]
